FAERS Safety Report 5303533-9 (Version None)
Quarter: 2007Q2

REPORT INFORMATION
  Report Type: 
  Country: None (occurrence: None)
  Receive Date: 20070420
  Receipt Date: 20070411
  Transmission Date: 20071010
  Serious: Yes (Hospitalization, Other)
  Sender: FDA-Public Use
  Company Number: FR-PFIZER INC-2007029670

PATIENT
  Age: 73 Year
  Sex: Female

DRUGS (1)
  1. CADUET [Suspect]

REACTIONS (2)
  - FLUSHING [None]
  - HYPERTENSIVE CRISIS [None]
